FAERS Safety Report 12962087 (Version 1)
Quarter: 2016Q4

REPORT INFORMATION
  Report Type: Spontaneous
  Country: JP (occurrence: JP)
  Receive Date: 20161121
  Receipt Date: 20161121
  Transmission Date: 20170207
  Serious: Yes (Other)
  Sender: FDA-Public Use
  Company Number: JP-SHIRE-JP201515885

PATIENT
  Age: 57 Year
  Sex: Female

DRUGS (1)
  1. FOSRENOL [Suspect]
     Active Substance: LANTHANUM CARBONATE
     Indication: HYPERPHOSPHATAEMIA
     Dosage: 1500 MG, UNKNOWN (/DAY)
     Route: 048

REACTIONS (3)
  - Gastritis erosive [Unknown]
  - Amyloid related imaging abnormalities [Unknown]
  - Medication residue present [Unknown]
